FAERS Safety Report 16495305 (Version 2)
Quarter: 2019Q3

REPORT INFORMATION
  Report Type: Spontaneous
  Country: RS (occurrence: RS)
  Receive Date: 20190628
  Receipt Date: 20190708
  Transmission Date: 20191004
  Serious: Yes (Hospitalization, Other)
  Sender: FDA-Public Use
  Company Number: RS-PFIZER INC-2019272966

PATIENT
  Age: 45 Year
  Sex: Female
  Weight: 79 kg

DRUGS (7)
  1. RIVOTRIL [Suspect]
     Active Substance: CLONAZEPAM
     Indication: ANXIETY
     Dosage: 1.5 MG, 3X/DAY, IN THE MORNING, IN THE NOON, IN THE EVENING
     Route: 048
     Dates: start: 20180905
  2. RIVOTRIL [Suspect]
     Active Substance: CLONAZEPAM
     Indication: PANIC ATTACK
  3. REMERON [Suspect]
     Active Substance: MIRTAZAPINE
     Dosage: 15 MG, 1X/DAY, IN THE EVENING
     Route: 048
     Dates: start: 2019
  4. ZOLOFT [Suspect]
     Active Substance: SERTRALINE HYDROCHLORIDE
     Indication: DEPRESSION
     Dosage: 200 MG, IN THE MORNING
     Route: 048
     Dates: start: 20180905
  5. REMERON [Suspect]
     Active Substance: MIRTAZAPINE
     Indication: DEPRESSION
     Dosage: 30 MG, 1X/DAY
     Route: 048
     Dates: start: 20180905
  6. FRAXIPARIN [Concomitant]
     Active Substance: NADROPARIN CALCIUM
     Dosage: UNK
     Route: 058
     Dates: start: 20190511
  7. ZOLOFT [Suspect]
     Active Substance: SERTRALINE HYDROCHLORIDE
     Indication: PANIC ATTACK

REACTIONS (15)
  - Anxiety [Unknown]
  - Tinea infection [Unknown]
  - Nervousness [Unknown]
  - Musculoskeletal chest pain [Unknown]
  - Escherichia urinary tract infection [Unknown]
  - Urinary incontinence [Recovered/Resolved]
  - Fall [Unknown]
  - Nasopharyngitis [Unknown]
  - Urinary tract infection bacterial [Unknown]
  - Sleep disorder [Unknown]
  - Stress [Unknown]
  - Withdrawal syndrome [Unknown]
  - Spinal pain [Unknown]
  - Lower limb fracture [Recovering/Resolving]
  - Discomfort [Unknown]

NARRATIVE: CASE EVENT DATE: 201812
